FAERS Safety Report 22012812 (Version 2)
Quarter: 2023Q2

REPORT INFORMATION
  Report Type: Spontaneous
  Country: US (occurrence: US)
  Receive Date: 20230220
  Receipt Date: 20230523
  Transmission Date: 20230721
  Serious: No
  Sender: FDA-Public Use
  Company Number: US-SA-SAC20230217000310

PATIENT
  Age: 9 Year
  Sex: Female

DRUGS (1)
  1. DUPIXENT [Suspect]
     Active Substance: DUPILUMAB
     Dosage: 200 MG, FREQUENCY: OTHER
     Route: 058

REACTIONS (7)
  - Panic attack [Unknown]
  - Fear of injection [Unknown]
  - Dermatitis [Not Recovered/Not Resolved]
  - Injection site pain [Unknown]
  - Injection site pruritus [Unknown]
  - Inappropriate schedule of product administration [Unknown]
  - Adverse drug reaction [Unknown]
